FAERS Safety Report 19791430 (Version 18)
Quarter: 2025Q3

REPORT INFORMATION
  Report Type: Spontaneous
  Country: US (occurrence: US)
  Receive Date: 20210906
  Receipt Date: 20250910
  Transmission Date: 20251020
  Serious: Yes (Life-Threatening, Other)
  Sender: PFIZER
  Company Number: US-PFIZER INC-2016227968

PATIENT
  Age: 74 Year
  Sex: Female

DRUGS (21)
  1. PREMARIN [Suspect]
     Active Substance: ESTROGENS, CONJUGATED
     Indication: Atrophic vulvovaginitis
     Route: 067
  2. PREMARIN [Suspect]
     Active Substance: ESTROGENS, CONJUGATED
     Indication: Urinary tract infection
     Dosage: 1/2 - 2 G VAGINAL EVERY EVENING
     Route: 067
     Dates: start: 20210930
  3. PREMARIN [Suspect]
     Active Substance: ESTROGENS, CONJUGATED
     Dosage: 1/2 - 2 G VAGINAL EVERY EVENING FOR 90 DAY(S)
     Route: 067
     Dates: start: 20211209
  4. PREMARIN [Suspect]
     Active Substance: ESTROGENS, CONJUGATED
     Route: 067
  5. PREMARIN [Suspect]
     Active Substance: ESTROGENS, CONJUGATED
     Dosage: 1 G VAGINAL EVERY EVENING
     Route: 067
  6. PREMARIN [Suspect]
     Active Substance: ESTROGENS, CONJUGATED
     Dosage: 1 G, WEEKLY
     Route: 067
  7. ZYRTEC [Suspect]
     Active Substance: CETIRIZINE HYDROCHLORIDE
  8. MOVANTIK [Concomitant]
     Active Substance: NALOXEGOL OXALATE
     Dosage: 12.5 MG, 1X/DAY (1 DAILY)
     Route: 048
  9. CIPROFLOXACIN HYDROCHLORIDE [Concomitant]
     Active Substance: CIPROFLOXACIN HYDROCHLORIDE
     Indication: Infection
     Dosage: 250 MG, 2X/DAY
     Route: 048
  10. OMEPRAZOLE [Concomitant]
     Active Substance: OMEPRAZOLE
     Indication: Hyperchlorhydria
     Dosage: 20 MG, 1X/DAY
     Route: 048
  11. VOLTAREN [Concomitant]
     Active Substance: DICLOFENAC SODIUM
     Indication: Pain
  12. LIBRAX [Concomitant]
     Active Substance: CHLORDIAZEPOXIDE HYDROCHLORIDE\CLIDINIUM BROMIDE
     Indication: Oesophageal spasm
  13. VALTREX [Concomitant]
     Active Substance: VALACYCLOVIR HYDROCHLORIDE
     Indication: Herpes virus infection
     Dosage: 500 MG, TWICE A DAY X 3 DAYS
     Route: 048
  14. BUPROPION HYDROCHLORIDE [Concomitant]
     Active Substance: BUPROPION HYDROCHLORIDE
  15. FLUTICASONE PROPIONATE [Concomitant]
     Active Substance: FLUTICASONE PROPIONATE
     Indication: Hypersensitivity
     Dosage: DAILY (2 SPRAYS EACH NOSTRIL)
  16. PROAIR HFA [Concomitant]
     Active Substance: ALBUTEROL SULFATE
     Indication: Wheezing
  17. BENTYL [Concomitant]
     Active Substance: DICYCLOMINE HYDROCHLORIDE
     Dosage: 20 MG, 3X/DAY  (PRN)
  18. MICRO-K [Concomitant]
     Active Substance: POTASSIUM CHLORIDE
     Dosage: UNK, 3X/DAY (1 TID)
  19. LASIX [Concomitant]
     Active Substance: FUROSEMIDE
     Dosage: 40 MG, 4X/DAY (1 QD)
  20. OXYCODONE AND ACETAMINOPHEN [Concomitant]
     Active Substance: ACETAMINOPHEN\OXYCODONE HYDROCHLORIDE
     Indication: Pain
     Dosage: UNK, 3X/DAY (1-2 TID)
  21. OXYCODONE AND ACETAMINOPHEN [Concomitant]
     Active Substance: ACETAMINOPHEN\OXYCODONE HYDROCHLORIDE
     Indication: Neuropathy peripheral

REACTIONS (7)
  - Accident [Unknown]
  - Memory impairment [Unknown]
  - Craniocerebral injury [Unknown]
  - Off label use [Unknown]
  - Incorrect dose administered [Unknown]
  - Product prescribing error [Unknown]
  - Balance disorder [Unknown]
